FAERS Safety Report 17552438 (Version 1)
Quarter: 2020Q1

REPORT INFORMATION
  Report Type: Spontaneous
  Country: CA (occurrence: CA)
  Receive Date: 20200317
  Receipt Date: 20200317
  Transmission Date: 20200409
  Serious: Yes (Other)
  Sender: FDA-Public Use
  Company Number: CA-ROCHE-2565335

PATIENT
  Sex: Female

DRUGS (1)
  1. TECENTRIQ [Suspect]
     Active Substance: ATEZOLIZUMAB
     Indication: LUNG CANCER METASTATIC
     Dosage: IV INFUSION OVER 30 MINUTES
     Route: 042
     Dates: start: 20191218

REACTIONS (4)
  - Somnolence [Not Recovered/Not Resolved]
  - Headache [Recovered/Resolved]
  - Rash erythematous [Not Recovered/Not Resolved]
  - Blindness transient [Not Recovered/Not Resolved]
